FAERS Safety Report 11636397 (Version 1)
Quarter: 2015Q4

REPORT INFORMATION
  Report Type: Spontaneous
  Country: US (occurrence: None)
  Receive Date: 20151015
  Receipt Date: 20151015
  Transmission Date: 20160304
  Serious: No
  Sender: FDA-Public Use
  Company Number: None

PATIENT
  Age: 29 Year
  Sex: Female
  Weight: 54.43 kg

DRUGS (3)
  1. VYVANSE [Suspect]
     Active Substance: LISDEXAMFETAMINE DIMESYLATE
     Indication: ATTENTION DEFICIT/HYPERACTIVITY DISORDER
     Dosage: 1 PILL TAKEN BY MOUTH
     Route: 048
     Dates: start: 20150820, end: 20151014
  2. PROBIOTIC [Concomitant]
     Active Substance: PROBIOTICS NOS
  3. MULTIVITAMINS [Concomitant]
     Active Substance: VITAMINS

REACTIONS (11)
  - Vaginal discharge [None]
  - Dry skin [None]
  - Vulvovaginal pain [None]
  - Dyspareunia [None]
  - Vulvovaginal dryness [None]
  - Vulvovaginal swelling [None]
  - Vulvovaginal erythema [None]
  - Hormone level abnormal [None]
  - Dry mouth [None]
  - Vaginal pH increased [None]
  - Fungal infection [None]

NARRATIVE: CASE EVENT DATE: 20151014
